FAERS Safety Report 4558592-8 (Version None)
Quarter: 2005Q1

REPORT INFORMATION
  Report Type: 
  Country: None (occurrence: None)
  Receive Date: 20050121
  Receipt Date: 20041209
  Transmission Date: 20050727
  Serious: Yes (Hospitalization)
  Sender: FDA-Public Use
  Company Number: US-ROCHE-389051

PATIENT
  Age: 35 Year
  Sex: Female
  Weight: 65.8 kg

DRUGS (7)
  1. PEGASYS [Suspect]
     Route: 058
     Dates: start: 20040502, end: 20041115
  2. PEGASYS [Suspect]
     Route: 058
     Dates: start: 20041115
  3. COPEGUS [Suspect]
     Dosage: 3 TAKEN AM AND 2 TAKEN PM.
     Route: 048
     Dates: start: 20040502, end: 20041115
  4. COPEGUS [Suspect]
     Dosage: 3 TAKEN AM AND 2 TAKEN PM.
     Route: 048
     Dates: start: 20041115
  5. LIDODERM [Concomitant]
     Indication: BACK PAIN
     Dosage: ROUTE: TAKEN VIA PATCH. TAKEN EVERY 12 HOURS.
     Route: 050
  6. VICOPROFEN [Concomitant]
     Indication: BACK PAIN
     Route: 048
  7. PREMARIN [Concomitant]
     Indication: HORMONE REPLACEMENT THERAPY
     Route: 048

REACTIONS (13)
  - ANAEMIA [None]
  - ANGER [None]
  - CEREBROVASCULAR ACCIDENT [None]
  - CERVICAL SPINAL STENOSIS [None]
  - CONFUSIONAL STATE [None]
  - DEPRESSION [None]
  - DIZZINESS [None]
  - FALL [None]
  - NAUSEA [None]
  - OSTEOARTHRITIS [None]
  - PRURITUS [None]
  - RASH [None]
  - SKIN DISORDER [None]
